FAERS Safety Report 6502989-3 (Version None)
Quarter: 2009Q4

REPORT INFORMATION
  Report Type: 
  Country: None (occurrence: None)
  Receive Date: 20091201
  Receipt Date: 20090303
  Transmission Date: 20100525
  Serious: Yes (Other)
  Sender: FDA-Public Use
  Company Number: 203293USA

PATIENT
  Sex: Female

DRUGS (3)
  1. ESTRACE [Suspect]
  2. ESTROGENS CONJUGATED [Suspect]
  3. ESTRADIOL [Suspect]

REACTIONS (1)
  - BREAST CANCER [None]
